FAERS Safety Report 16745529 (Version 1)
Quarter: 2019Q3

REPORT INFORMATION
  Report Type: Spontaneous
  Country: US (occurrence: US)
  Receive Date: 20190709
  Receipt Date: 20190709
  Transmission Date: 20191005
  Serious: No
  Sender: FDA-Public Use
  Company Number: None

PATIENT
  Age: 48 Year
  Sex: Male
  Weight: 65.77 kg

DRUGS (1)
  1. ERYFOTONA ACTINICA ULTRALIGHT EMULSION [Suspect]
     Active Substance: ZINC OXIDE
     Indication: SUNBURN

REACTIONS (2)
  - Sunburn [None]
  - Therapeutic product ineffective [None]

NARRATIVE: CASE EVENT DATE: 20190630
